FAERS Safety Report 9538653 (Version 1)
Quarter: 2013Q3

REPORT INFORMATION
  Report Type: Spontaneous
  Country: IN (occurrence: IN)
  Receive Date: 20130920
  Receipt Date: 20130920
  Transmission Date: 20140515
  Serious: Yes (Hospitalization, Other)
  Sender: FDA-Public Use
  Company Number: PHHY2013IN101574

PATIENT
  Age: 34 Year
  Sex: Female

DRUGS (6)
  1. CLOZAPINE [Suspect]
     Dosage: UNK
  2. CLOZAPINE [Suspect]
     Dosage: 200 MG
  3. CLOZAPINE [Suspect]
     Dosage: 100 MG
  4. CLOZAPINE [Suspect]
     Dosage: 200 MG
  5. CLOZAPINE [Suspect]
     Dosage: 300 MG
  6. ARIPIPRAZOLE [Concomitant]
     Dosage: 10 MG

REACTIONS (5)
  - Psychotic disorder [Recovering/Resolving]
  - Restless legs syndrome [Recovered/Resolved]
  - Initial insomnia [Unknown]
  - Pain in extremity [Unknown]
  - Sleep disorder [Unknown]
